FAERS Safety Report 11924958 (Version 4)
Quarter: 2016Q1

REPORT INFORMATION
  Report Type: Spontaneous
  Country: US (occurrence: US)
  Receive Date: 20160118
  Receipt Date: 20160310
  Transmission Date: 20160526
  Serious: No
  Sender: FDA-Public Use
  Company Number: US-ASTRAZENECA-2016SE02749

PATIENT
  Age: 840 Month
  Sex: Female

DRUGS (2)
  1. ASPIRIN. [Concomitant]
     Active Substance: ASPIRIN
     Indication: SUPPLEMENTATION THERAPY
     Dosage: DAILY
  2. BRILINTA [Suspect]
     Active Substance: TICAGRELOR
     Indication: ACUTE CORONARY SYNDROME
     Route: 048

REACTIONS (10)
  - Sleep disorder [Unknown]
  - Anxiety [Unknown]
  - Feeling abnormal [Unknown]
  - Therapeutic response unexpected [Unknown]
  - Nasal congestion [Unknown]
  - Drug dose omission [Recovered/Resolved]
  - Dyspnoea [Unknown]
  - Stress [Unknown]
  - Initial insomnia [Unknown]
  - Contusion [Unknown]

NARRATIVE: CASE EVENT DATE: 201508
